FAERS Safety Report 8372945-1 (Version None)
Quarter: 2012Q2

REPORT INFORMATION
  Report Type: 
  Country: None (occurrence: None)
  Receive Date: 20120521
  Receipt Date: 20111102
  Transmission Date: 20120825
  Serious: No
  Sender: FDA-Public Use
  Company Number: US-ASTRAZENECA-2011SE73378

PATIENT

DRUGS (4)
  1. PRILOSEC OTC [Suspect]
     Indication: PHARYNGEAL DISORDER
     Route: 048
     Dates: start: 20111017
  2. TESTOSTERONE [Concomitant]
     Dosage: UNKNOWN
  3. PRASTERONE [Concomitant]
     Dosage: UNKNOWN
  4. HORMONES NOS [Concomitant]
     Dosage: UNKNOWN

REACTIONS (2)
  - ERUCTATION [None]
  - GASTROINTESTINAL SOUNDS ABNORMAL [None]
